FAERS Safety Report 25201339 (Version 2)
Quarter: 2025Q2

REPORT INFORMATION
  Report Type: Report from Study
  Country: US (occurrence: US)
  Receive Date: 20250416
  Receipt Date: 20250512
  Transmission Date: 20250717
  Serious: Yes (Other)
  Sender: ALEXION PHARMACEUTICALS
  Company Number: US-AstraZeneca-CH-00846922A

PATIENT

DRUGS (4)
  1. ULTOMIRIS [Suspect]
     Active Substance: RAVULIZUMAB-CWVZ
     Route: 065
  2. SOLIRIS [Suspect]
     Active Substance: ECULIZUMAB
     Route: 065
  3. METHOTREXATE [Concomitant]
     Active Substance: METHOTREXATE
     Route: 065
  4. REPATHA [Concomitant]
     Active Substance: EVOLOCUMAB
     Route: 065

REACTIONS (9)
  - Neoplasm malignant [Unknown]
  - Spinal column injury [Unknown]
  - Fall [Unknown]
  - Coccydynia [Unknown]
  - Weight increased [Unknown]
  - White blood cell count decreased [Unknown]
  - Prostatic specific antigen increased [Unknown]
  - Micturition urgency [Unknown]
  - Infusion site haemorrhage [Unknown]
